FAERS Safety Report 8431455-3 (Version None)
Quarter: 2012Q2

REPORT INFORMATION
  Report Type: 
  Country: None (occurrence: None)
  Receive Date: 20120607
  Receipt Date: 20120607
  Transmission Date: 20120825
  Serious: Yes (Disabling)
  Sender: FDA-Public Use
  Company Number: None

PATIENT
  Age: 50 Year
  Sex: Female
  Weight: 113.3993 kg

DRUGS (1)
  1. PLAQUENIL [Suspect]
     Indication: RHEUMATOID ARTHRITIS
     Dosage: 200 MG 2X DAY ORAL
     Route: 048

REACTIONS (4)
  - CONDITION AGGRAVATED [None]
  - SKIN DISCOLOURATION [None]
  - CONTUSION [None]
  - RHEUMATOID ARTHRITIS [None]
